FAERS Safety Report 8317809 (Version 4)
Quarter: 2013Q2

REPORT INFORMATION
  Report Type: Spontaneous
  Country: US (occurrence: US)
  Receive Date: 20120102
  Receipt Date: 20130513
  Transmission Date: 20140414
  Serious: Yes (Other)
  Sender: FDA-Public Use
  Company Number: US-ROCHE-795850

PATIENT
  Age: 23 Year
  Sex: Female
  Weight: 72.64 kg

DRUGS (5)
  1. ACCUTANE [Suspect]
     Indication: ACNE
     Dosage: 40 MG EVERY DAY ALTERNATING WITH 80 MG
     Route: 048
     Dates: start: 19971126, end: 199804
  2. ACCUTANE [Suspect]
     Route: 048
  3. ACCUTANE [Suspect]
     Route: 048
     Dates: start: 20080313, end: 200809
  4. ORTHO-CEPT [Concomitant]
     Indication: CONTRACEPTION
  5. ORTHO-CEPT [Concomitant]
     Indication: ACNE

REACTIONS (10)
  - Colitis ulcerative [Unknown]
  - Irritable bowel syndrome [Unknown]
  - Haemorrhoids [Unknown]
  - Depression [Unknown]
  - Attention deficit/hyperactivity disorder [Unknown]
  - Panic attack [Unknown]
  - Epistaxis [Unknown]
  - Rash [Unknown]
  - Pruritus [Unknown]
  - Blood triglycerides increased [Unknown]
